FAERS Safety Report 18555437 (Version 1)
Quarter: 2020Q4

REPORT INFORMATION
  Report Type: Report from Study
  Country: DE (occurrence: DE)
  Receive Date: 20201127
  Receipt Date: 20201127
  Transmission Date: 20210114
  Serious: Yes (Hospitalization)
  Sender: FDA-Public Use
  Company Number: DE-TAKEDA-2020TUS051834

PATIENT
  Age: 16 Year

DRUGS (4)
  1. ADVATE [Suspect]
     Active Substance: ANTIHEMOPHILIC FACTOR, HUMAN RECOMBINANT
     Indication: HAEMOPHILIA
     Dosage: 3000 INTERNATIONAL UNIT, ON DEMAND
     Route: 042
     Dates: start: 20050804
  2. CHLORHEXIDINE [Concomitant]
     Active Substance: CHLORHEXIDINE
     Dosage: UNK
     Route: 048
     Dates: start: 20190423, end: 20190503
  3. ADVATE [Suspect]
     Active Substance: ANTIHEMOPHILIC FACTOR, HUMAN RECOMBINANT
     Indication: HAEMOPHILIA
     Dosage: 3000 INTERNATIONAL UNIT, ON DEMAND
     Route: 042
     Dates: start: 20050804
  4. ADVATE [Suspect]
     Active Substance: ANTIHEMOPHILIC FACTOR, HUMAN RECOMBINANT
     Indication: HAEMOPHILIA
     Dosage: 3000 INTERNATIONAL UNIT, ON DEMAND
     Route: 042
     Dates: start: 20050804

REACTIONS (1)
  - Tooth impacted [Recovered/Resolved]

NARRATIVE: CASE EVENT DATE: 20190423
